FAERS Safety Report 5900902-0 (Version None)
Quarter: 2008Q3

REPORT INFORMATION
  Report Type: 
  Country: None (occurrence: None)
  Receive Date: 20080929
  Receipt Date: 20080922
  Transmission Date: 20090109
  Serious: Yes (Death, Other)
  Sender: FDA-Public Use
  Company Number: PHHY2008SE22236

PATIENT
  Sex: Female

DRUGS (2)
  1. ZOMETA [Suspect]
  2. FOSAMAX [Suspect]
     Indication: OSTEOPOROSIS

REACTIONS (7)
  - ARRHYTHMIA [None]
  - GINGIVAL DISORDER [None]
  - GLOSSITIS [None]
  - HAEMATEMESIS [None]
  - ORAL PAIN [None]
  - OSTEONECROSIS [None]
  - TOOTH DISORDER [None]
